FAERS Safety Report 7688064-3 (Version None)
Quarter: 2011Q3

REPORT INFORMATION
  Report Type: 
  Country: None (occurrence: None)
  Receive Date: 20110817
  Receipt Date: 20110811
  Transmission Date: 20111222
  Serious: Yes (Other)
  Sender: FDA-Public Use
  Company Number: CHPA2011US10798

PATIENT
  Age: 63 Year
  Sex: Female

DRUGS (5)
  1. PREVACID [Concomitant]
     Indication: DYSPEPSIA
     Dosage: UNK DF, UNK
  2. MAALOX ANTACID/ANTIGAS MAX LIQ [Suspect]
     Indication: DYSPEPSIA
     Dosage: 9 TSP, QHS
     Route: 048
  3. MAALOX TOTAL RELIEF [Concomitant]
     Indication: DYSPEPSIA
     Dosage: UNK DF, UNK
  4. PRILOSEC [Concomitant]
     Indication: DYSPEPSIA
     Dosage: UNK DF, UNK
  5. PREVACID 24 HR [Concomitant]
     Indication: DYSPEPSIA
     Dosage: 15 MG, QD
     Route: 048
     Dates: start: 20100101, end: 20100101

REACTIONS (12)
  - EXPIRED DRUG ADMINISTERED [None]
  - MANIA [None]
  - RESTLESSNESS [None]
  - MUSCLE SPASMS [None]
  - INSOMNIA [None]
  - WITHDRAWAL SYNDROME [None]
  - CHEST PAIN [None]
  - INCORRECT DRUG ADMINISTRATION DURATION [None]
  - BURNING SENSATION [None]
  - OFF LABEL USE [None]
  - DRUG DEPENDENCE [None]
  - OVERDOSE [None]
